FAERS Safety Report 11607834 (Version 1)
Quarter: 2015Q4

REPORT INFORMATION
  Report Type: Report from Study
  Country: US (occurrence: US)
  Receive Date: 20151007
  Receipt Date: 20151007
  Transmission Date: 20160304
  Serious: Yes (Hospitalization)
  Sender: FDA-Public Use
  Company Number: US-JNJFOC-20151004328

PATIENT
  Age: 77 Year
  Sex: Female

DRUGS (4)
  1. TYLENOL [Concomitant]
     Active Substance: ACETAMINOPHEN
  2. IMBRUVICA [Suspect]
     Active Substance: IBRUTINIB
     Indication: CHRONIC LYMPHOCYTIC LEUKAEMIA
     Route: 048
     Dates: start: 20150829, end: 201509
  3. IMBRUVICA [Suspect]
     Active Substance: IBRUTINIB
     Indication: CHRONIC LYMPHOCYTIC LEUKAEMIA
     Route: 048
     Dates: start: 201509
  4. FAMCICLOVIR. [Concomitant]
     Active Substance: FAMCICLOVIR

REACTIONS (3)
  - Blood sodium decreased [Unknown]
  - Limb discomfort [Unknown]
  - Lung disorder [Unknown]

NARRATIVE: CASE EVENT DATE: 201509
